FAERS Safety Report 24106826 (Version 4)
Quarter: 2024Q3

REPORT INFORMATION
  Report Type: Spontaneous
  Country: IT (occurrence: IT)
  Receive Date: 20240717
  Receipt Date: 20240926
  Transmission Date: 20241017
  Serious: Yes (Death, Other)
  Sender: MERCK
  Company Number: None

PATIENT
  Age: 1 Year
  Sex: Female
  Weight: 10 kg

DRUGS (3)
  1. PROQUAD [Suspect]
     Active Substance: MEASLES VIRUS STRAIN ENDERS^ ATTENUATED EDMONSTON LIVE ANTIGEN\MUMPS VIRUS STRAIN B LEVEL JERYL LYNN
     Indication: Immunisation
     Route: 058
     Dates: start: 20190603
  2. STERILE DILUENT (WATER) [Suspect]
     Active Substance: WATER
     Dosage: 0.5 MILLILITER
     Route: 058
     Dates: start: 20190603
  3. BEXSERO [Suspect]
     Active Substance: NEISSERIA MENINGITIDIS GROUP B FHBP FUSION PROTEIN ANTIGEN\NEISSERIA MENINGITIDIS GROUP B NADA PROTE
     Indication: Immunisation
     Dosage: UNK
     Route: 058
     Dates: start: 20200117

REACTIONS (4)
  - Pyrexia [Fatal]
  - Decreased appetite [Fatal]
  - Rash macular [Fatal]
  - Seizure [Fatal]

NARRATIVE: CASE EVENT DATE: 20190603
